FAERS Safety Report 7397687-0 (Version None)
Quarter: 2011Q2

REPORT INFORMATION
  Report Type: 
  Country: None (occurrence: None)
  Receive Date: 20110406
  Receipt Date: 20110401
  Transmission Date: 20111010
  Serious: Yes (Other)
  Sender: FDA-Public Use
  Company Number: US-PFIZER INC-2011073276

PATIENT
  Sex: Male
  Weight: 125 kg

DRUGS (2)
  1. DEPO-PROVERA [Suspect]
     Indication: SEXUAL ABUSE
  2. DEPO-PROVERA [Suspect]
     Indication: OFF LABEL USE
     Dosage: 400 MG, EVERY 8 WEEKS
     Route: 030
     Dates: start: 19970101

REACTIONS (2)
  - THYROID DISORDER [None]
  - DISTURBANCE IN SEXUAL AROUSAL [None]
